FAERS Safety Report 10252073 (Version 1)
Quarter: 2014Q2

REPORT INFORMATION
  Report Type: Report from Study
  Country: US (occurrence: US)
  Receive Date: 20140623
  Receipt Date: 20140623
  Transmission Date: 20141212
  Serious: No
  Sender: FDA-Public Use
  Company Number: PHEH2014US012327

PATIENT
  Sex: Female

DRUGS (8)
  1. TASIGNA [Suspect]
     Indication: CHRONIC MYELOID LEUKAEMIA
     Dosage: 2 DF, Q12H
     Route: 048
  2. TASIGNA [Suspect]
     Dosage: 2 DF, Q12H
     Route: 048
  3. METFORMIN [Concomitant]
  4. LIPITOR [Concomitant]
  5. BYSTOLIC [Concomitant]
  6. COZAAR [Concomitant]
  7. CALCIUM CITRATE [Concomitant]
  8. OMEGA 3 6 9 [Concomitant]

REACTIONS (12)
  - Feeling abnormal [Unknown]
  - Glycosylated haemoglobin increased [Unknown]
  - Diarrhoea [Unknown]
  - Haematochezia [Unknown]
  - Nausea [Unknown]
  - Decreased appetite [Unknown]
  - Alopecia [Unknown]
  - Abdominal pain [Unknown]
  - Heart rate decreased [Unknown]
  - Weight decreased [Unknown]
  - Blood electrolytes abnormal [Unknown]
  - Insomnia [Unknown]
